FAERS Safety Report 10037097 (Version 5)
Quarter: 2014Q2

REPORT INFORMATION
  Report Type: Report from Study
  Country: DK (occurrence: DK)
  Receive Date: 20140326
  Receipt Date: 20140612
  Transmission Date: 20141212
  Serious: Yes (Hospitalization)
  Sender: FDA-Public Use
  Company Number: DK-ROCHE-1367885

PATIENT
  Age: 69 Year
  Sex: Male
  Weight: 74.3 kg

DRUGS (14)
  1. OBINUTUZUMAB [Suspect]
     Indication: DIFFUSE LARGE B-CELL LYMPHOMA
     Dosage: MOST RECENT DOSE PRIOR TO FIRST EPISODE OF FEBRILE NEUTROPENIA: 14/MAR/2014, LAST VOLUME AND DOSE CO
     Route: 042
     Dates: start: 20140307
  2. CYCLOPHOSPHAMIDE [Suspect]
     Indication: DIFFUSE LARGE B-CELL LYMPHOMA
     Dosage: MOST RECENT DOSE PRIOR TO FIRST EPISODE OF FEBRILE NEUTROPENIA : 07/MAR/2014, LAST DOSE TAKEN PRIOR
     Route: 042
     Dates: start: 20140307
  3. DOXORUBICIN [Suspect]
     Indication: DIFFUSE LARGE B-CELL LYMPHOMA
     Dosage: MOST RECENT DOSE PRIOR TO FIRST EPISODE OF FEBRILE NEUTROPENIA: 07/MAR/2014, LAST DOSE TAKEN PRIOR T
     Route: 042
     Dates: start: 20140307
  4. VINCRISTINE [Suspect]
     Indication: DIFFUSE LARGE B-CELL LYMPHOMA
     Dosage: MOST RECENT DOSE PRIOR TO FIRST EPISODE OF FEBRILE NEUTROPENIA: 07/MAR/2014, LAST DOSE TAKEN PRIOR T
     Route: 050
     Dates: start: 20140307
  5. PREDNISONE [Suspect]
     Indication: DIFFUSE LARGE B-CELL LYMPHOMA
     Dosage: MOST RECENT DOSE PRIOR TO FIRST EPISODE OF FEBRILE NEUTROPENIA: 11/MAR/2014, LAST DOSE TAKEN PRIOR T
     Route: 048
     Dates: start: 20140307
  6. NEBIDO [Concomitant]
     Indication: SECONDARY HYPOGONADISM
  7. BETOLVEX [Concomitant]
  8. ASACOL [Concomitant]
     Indication: COLITIS ULCERATIVE
  9. ELTROXIN [Concomitant]
  10. ONDANSETRON [Concomitant]
     Route: 065
     Dates: start: 20140307
  11. GASTRO-TIMELETS [Concomitant]
     Route: 065
     Dates: start: 20140307
  12. TAVEGYL [Concomitant]
     Route: 065
     Dates: start: 20140307
  13. PARACETAMOL [Concomitant]
     Route: 065
     Dates: start: 20140307
  14. SOLU-MEDROL [Concomitant]
     Route: 065
     Dates: start: 20140307

REACTIONS (2)
  - Febrile neutropenia [Recovered/Resolved]
  - Febrile neutropenia [Not Recovered/Not Resolved]
